FAERS Safety Report 4301831-9 (Version None)
Quarter: 2004Q1

REPORT INFORMATION
  Report Type: 
  Country: None (occurrence: None)
  Receive Date: 20040218
  Receipt Date: 20031211
  Transmission Date: 20041129
  Serious: Yes (Other)
  Sender: FDA-Public Use
  Company Number: K200301898

PATIENT
  Age: 49 Year
  Sex: Female
  Weight: 148.8 kg

DRUGS (3)
  1. PROCANBID [Suspect]
     Indication: SUPRAVENTRICULAR TACHYCARDIA
     Dosage: 1000 MG, QD, ORAL
     Route: 048
     Dates: start: 20030901, end: 20031101
  2. PROCANBID [Suspect]
     Indication: SUPRAVENTRICULAR TACHYCARDIA
     Dosage: 1000 MG, QD, ORAL
     Route: 048
     Dates: start: 20031101
  3. PROTONIX [Concomitant]

REACTIONS (6)
  - ANTINUCLEAR ANTIBODY POSITIVE [None]
  - HYPOKINESIA [None]
  - JOINT SWELLING [None]
  - OEDEMA PERIPHERAL [None]
  - RED BLOOD CELL SEDIMENTATION RATE INCREASED [None]
  - SYSTEMIC LUPUS ERYTHEMATOSUS [None]
